FAERS Safety Report 6470344-0 (Version None)
Quarter: 2009Q4

REPORT INFORMATION
  Report Type: 
  Country: None (occurrence: None)
  Receive Date: 20091201
  Receipt Date: 20091118
  Transmission Date: 20100525
  Serious: Yes (Other)
  Sender: FDA-Public Use
  Company Number: 2009SP038035

PATIENT
  Age: 29 Year
  Sex: Female
  Weight: 64 kg

DRUGS (3)
  1. IMPLANON [Suspect]
     Indication: CONTRACEPTION
     Dosage: SBDE
     Route: 059
     Dates: start: 20091001
  2. ZOLOFT [Concomitant]
  3. SEROQUEL [Concomitant]

REACTIONS (4)
  - FATIGUE [None]
  - NERVOUSNESS [None]
  - SUICIDAL IDEATION [None]
  - VAGINAL HAEMORRHAGE [None]
